FAERS Safety Report 24845126 (Version 1)
Quarter: 2025Q1

REPORT INFORMATION
  Report Type: Spontaneous
  Country: GB (occurrence: GB)
  Receive Date: 20250115
  Receipt Date: 20250115
  Transmission Date: 20250408
  Serious: Yes (Hospitalization)
  Sender: MYLAN
  Company Number: GB-MYLANLABS-2025M1002757

PATIENT
  Sex: Male

DRUGS (1)
  1. CLOZARIL [Suspect]
     Active Substance: CLOZAPINE
     Indication: Schizophrenia
     Route: 048
     Dates: start: 20210804, end: 20241224

REACTIONS (6)
  - Mental impairment [Unknown]
  - Gastritis [Unknown]
  - Pancreatitis [Unknown]
  - Respiratory tract infection [Unknown]
  - Malaise [Unknown]
  - Vomiting [Unknown]
